FAERS Safety Report 22287633 (Version 1)
Quarter: 2023Q2

REPORT INFORMATION
  Report Type: Spontaneous
  Country: AU (occurrence: AU)
  Receive Date: 20230505
  Receipt Date: 20230505
  Transmission Date: 20230722
  Serious: Yes (Life-Threatening, Hospitalization)
  Sender: FDA-Public Use
  Company Number: AU-STRIDES ARCOLAB LIMITED-2023SP006437

PATIENT
  Age: 5 Decade
  Sex: Female

DRUGS (2)
  1. PREDNISOLONE [Suspect]
     Active Substance: PREDNISOLONE
     Indication: Arthralgia
     Dosage: 25 MILLIGRAM (PER DAY)
     Route: 065
  2. PREDNISOLONE [Suspect]
     Active Substance: PREDNISOLONE
     Indication: Raynaud^s phenomenon
     Dosage: UNK (RE-INITIATED THERAPY )
     Route: 065

REACTIONS (6)
  - Thrombotic microangiopathy [Unknown]
  - Acute kidney injury [Unknown]
  - Hypertensive crisis [Unknown]
  - Seizure [Unknown]
  - Hypertensive encephalopathy [Unknown]
  - Scleroderma renal crisis [Unknown]
